FAERS Safety Report 7609528-4 (Version None)
Quarter: 2011Q3

REPORT INFORMATION
  Report Type: 
  Country: None (occurrence: None)
  Receive Date: 20110714
  Receipt Date: 20110706
  Transmission Date: 20111222
  Serious: Yes (Hospitalization)
  Sender: FDA-Public Use
  Company Number: US-US-EMD SERONO, INC.-7050513

PATIENT
  Sex: Female
  Weight: 59 kg

DRUGS (4)
  1. REBIF [Suspect]
     Route: 058
     Dates: start: 20110406, end: 20110414
  2. ASPIRIN [Concomitant]
     Dates: end: 20110201
  3. ASPIRIN [Concomitant]
     Dates: start: 20110501
  4. REBIF [Suspect]
     Indication: MULTIPLE SCLEROSIS
     Route: 058
     Dates: start: 20110221

REACTIONS (11)
  - TRANSIENT ISCHAEMIC ATTACK [None]
  - ASTHENIA [None]
  - FALL [None]
  - GASTROINTESTINAL INFECTION [None]
  - DISEASE PROGRESSION [None]
  - URINARY TRACT INFECTION [None]
  - MEMORY IMPAIRMENT [None]
  - MULTIPLE SCLEROSIS [None]
  - FATIGUE [None]
  - POOR QUALITY SLEEP [None]
  - DIARRHOEA HAEMORRHAGIC [None]
